FAERS Safety Report 23982773 (Version 1)
Quarter: 2024Q2

REPORT INFORMATION
  Report Type: Spontaneous
  Country: US (occurrence: US)
  Receive Date: 20240617
  Receipt Date: 20240617
  Transmission Date: 20240716
  Serious: No
  Sender: FDA-Public Use
  Company Number: US-PFIZER INC-202400193921

PATIENT
  Age: 71 Year
  Sex: Female

DRUGS (3)
  1. IBRANCE [Suspect]
     Active Substance: PALBOCICLIB
     Indication: Breast cancer metastatic
     Dosage: DAILY ON DAYS 1-21 EACH 28 DAYS CYCLE
     Route: 048
     Dates: start: 20240604
  2. XANAX [Concomitant]
     Active Substance: ALPRAZOLAM
     Indication: Premedication
     Dosage: 1 DF, AS NEEDED 1 HOUR PRIORTO PROCEDURES IMAGING STUDIES. THAKE 15 MLS BY MOUTH NIGHTLY
     Route: 048
     Dates: start: 20240515
  3. LETROZOLE [Concomitant]
     Active Substance: LETROZOLE
     Dosage: 2.5 MG, DAILY
     Route: 048
     Dates: start: 202006

REACTIONS (2)
  - Abdominal pain [Recovering/Resolving]
  - Diarrhoea [Unknown]

NARRATIVE: CASE EVENT DATE: 20240101
